FAERS Safety Report 16312389 (Version 3)
Quarter: 2019Q3

REPORT INFORMATION
  Report Type: Report from Study
  Country: US (occurrence: US)
  Receive Date: 20190515
  Receipt Date: 20190923
  Transmission Date: 20191004
  Serious: No
  Sender: FDA-Public Use
  Company Number: PHEH2019US020536

PATIENT
  Sex: Female

DRUGS (1)
  1. GILENYA [Suspect]
     Active Substance: FINGOLIMOD HYDROCHLORIDE
     Indication: MULTIPLE SCLEROSIS
     Dosage: 0.5 MG, QD
     Route: 048
     Dates: start: 20181116

REACTIONS (5)
  - Malaise [Unknown]
  - Central nervous system lesion [Unknown]
  - Oropharyngeal discomfort [Unknown]
  - Cough [Unknown]
  - Red blood cell count abnormal [Unknown]
